FAERS Safety Report 16453735 (Version 3)
Quarter: 2019Q3

REPORT INFORMATION
  Report Type: Spontaneous
  Country: US (occurrence: US)
  Receive Date: 20190619
  Receipt Date: 20190719
  Transmission Date: 20191004
  Serious: Yes (Other)
  Sender: FDA-Public Use
  Company Number: US-AMREGENT-20191252

PATIENT

DRUGS (1)
  1. MULTITRACE-4 [Suspect]
     Active Substance: CHROMIC CHLORIDE\CUPRIC SULFATE\MANGANESE SULFATE\ZINC SULFATE HEPTAHYDRATE
     Dosage: UNKNOWN
     Route: 042
     Dates: start: 20190607, end: 20190610

REACTIONS (2)
  - Product preparation error [Unknown]
  - Incorrect product formulation administered [Unknown]

NARRATIVE: CASE EVENT DATE: 20190607
